FAERS Safety Report 13027808 (Version 2)
Quarter: 2017Q1

REPORT INFORMATION
  Report Type: Spontaneous
  Country: US (occurrence: US)
  Receive Date: 20161214
  Receipt Date: 20170103
  Transmission Date: 20170428
  Serious: Yes (Hospitalization)
  Sender: FDA-Public Use
  Company Number: US-PFIZER INC-2016573047

PATIENT
  Sex: Male

DRUGS (2)
  1. INLYTA [Suspect]
     Active Substance: AXITINIB
     Dosage: 20 MG, UNK
  2. INLYTA [Suspect]
     Active Substance: AXITINIB
     Dosage: 15 MG, UNK

REACTIONS (2)
  - Feeling abnormal [Unknown]
  - Sinusitis [Unknown]
